FAERS Safety Report 25384163 (Version 1)
Quarter: 2025Q2

REPORT INFORMATION
  Report Type: Spontaneous
  Country: SE (occurrence: SE)
  Receive Date: 20250602
  Receipt Date: 20250602
  Transmission Date: 20250716
  Serious: Yes (Hospitalization)
  Sender: TEVA
  Company Number: None

PATIENT
  Age: 69 Year
  Sex: Female
  Weight: 59 kg

DRUGS (1)
  1. DOCETAXEL [Suspect]
     Active Substance: DOCETAXEL
     Indication: Breast cancer
     Dosage: 132 MG INTRAVENOUSLY (EVERY 3 WEEKS)
     Route: 042
     Dates: start: 20250401

REACTIONS (4)
  - Non-cardiac chest pain [Recovering/Resolving]
  - Condition aggravated [Recovering/Resolving]
  - Radiation associated pain [Recovering/Resolving]
  - Cervical spinal stenosis [Recovering/Resolving]

NARRATIVE: CASE EVENT DATE: 20250514
